FAERS Safety Report 6760546-8 (Version None)
Quarter: 2010Q2

REPORT INFORMATION
  Report Type: 
  Country: None (occurrence: None)
  Receive Date: 20100604
  Receipt Date: 20100521
  Transmission Date: 20101027
  Serious: Yes (Hospitalization)
  Sender: FDA-Public Use
  Company Number: 7005533

PATIENT
  Age: 49 Year
  Sex: Female
  Weight: 64 kg

DRUGS (4)
  1. REBIF [Suspect]
     Indication: MULTIPLE SCLEROSIS
     Dosage: 44 MCG, 3 IN 1 WK, SUBCUTANEOUS
     Route: 058
     Dates: start: 20050824
  2. PLAVIX [Suspect]
     Indication: CAROTID ARTERY OCCLUSION
  3. AGGRENOX [Suspect]
     Indication: CAROTID ARTERY OCCLUSION
  4. ASPIRIN [Suspect]
     Indication: CAROTID ARTERY OCCLUSION
     Dosage: 325 MG

REACTIONS (1)
  - SUBDURAL HAEMATOMA [None]
